FAERS Safety Report 9298674 (Version 1)
Quarter: 2013Q2

REPORT INFORMATION
  Report Type: Spontaneous
  Country: US (occurrence: US)
  Receive Date: 20130520
  Receipt Date: 20130520
  Transmission Date: 20140414
  Serious: Yes (Hospitalization)
  Sender: FDA-Public Use
  Company Number: US-AMGEN-USASP2013033854

PATIENT
  Age: 76 Year
  Sex: Female

DRUGS (24)
  1. PROLIA [Suspect]
     Indication: OSTEOPOROSIS POSTMENOPAUSAL
     Dosage: 60 MG, UNK
  2. BENAZEPRIL [Concomitant]
  3. ZANTAC RELIEF [Concomitant]
  4. TRAMADOL [Concomitant]
  5. OMEPRAZOLE                         /00661202/ [Concomitant]
  6. FEMARA [Concomitant]
  7. TAMOXIFEN [Concomitant]
  8. AMLODIPINE [Concomitant]
     Dosage: 5 MG, UNK
  9. PRAVASTATIN [Concomitant]
     Dosage: 20 MG, UNK
  10. XALATAN [Concomitant]
  11. CLARITIN                           /00413701/ [Concomitant]
  12. ZYRTEC [Concomitant]
  13. BENADRYL                           /00000402/ [Concomitant]
  14. CO Q 10                            /00517201/ [Concomitant]
     Dosage: 300 MG, UNK
  15. MAGNESIUM [Concomitant]
     Dosage: 400 MG, UNK
  16. CALCIUM CITRATE WITH VITAMIN D [Concomitant]
  17. RESVERATROL [Concomitant]
     Dosage: 250 MG, UNK
  18. FOLIC ACID W/VITAMIN B COMPLEX [Concomitant]
  19. VITAMIN B12                        /00056201/ [Concomitant]
     Dosage: 1000 MG, UNK
  20. VITAMIN C                          /00008001/ [Concomitant]
  21. MULTIVITAMIN                       /07504101/ [Concomitant]
  22. COSAMIN DS                         /06404301/ [Concomitant]
  23. OMEGA 3 FISH OIL [Concomitant]
  24. CLOBETASOL [Concomitant]

REACTIONS (19)
  - Pyrexia [Recovered/Resolved]
  - Malaise [Unknown]
  - Local swelling [Recovering/Resolving]
  - Muscle spasms [Unknown]
  - Fatigue [Unknown]
  - Headache [Unknown]
  - Vein disorder [Unknown]
  - Dysuria [Unknown]
  - Myalgia [Unknown]
  - Tremor [Unknown]
  - Confusional state [Unknown]
  - Hyperhidrosis [Unknown]
  - Pollakiuria [Unknown]
  - Mobility decreased [Unknown]
  - Chills [Unknown]
  - Hypersensitivity [Unknown]
  - Pain in extremity [Unknown]
  - Erythema [Recovered/Resolved]
  - Rash [Unknown]
